FAERS Safety Report 7381594-3 (Version None)
Quarter: 2011Q1

REPORT INFORMATION
  Report Type: 
  Country: None (occurrence: None)
  Receive Date: 20110329
  Receipt Date: 20110323
  Transmission Date: 20110831
  Serious: Yes (Other)
  Sender: FDA-Public Use
  Company Number: ES-BRISTOL-MYERS SQUIBB COMPANY-15628365

PATIENT
  Age: 6 Decade
  Sex: Female

DRUGS (1)
  1. MYCOSTATIN [Suspect]

REACTIONS (1)
  - GASTROINTESTINAL DISORDER [None]
